FAERS Safety Report 21933625 (Version 1)
Quarter: 2023Q1

REPORT INFORMATION
  Report Type: Report from Study
  Country: US (occurrence: US)
  Receive Date: 20230201
  Receipt Date: 20230201
  Transmission Date: 20230417
  Serious: Yes (Hospitalization, Other)
  Sender: FDA-Public Use
  Company Number: US-UCBSA-2022039239

PATIENT
  Sex: Female
  Weight: 88.45 kg

DRUGS (10)
  1. CERTOLIZUMAB PEGOL [Suspect]
     Active Substance: CERTOLIZUMAB PEGOL
     Indication: Ankylosing spondylitis
     Dosage: 400 MILLIGRAM, EV 2 WEEKS(QOW)
     Route: 058
     Dates: start: 20220628, end: 20220712
  2. CERTOLIZUMAB PEGOL [Suspect]
     Active Substance: CERTOLIZUMAB PEGOL
     Indication: Spinal osteoarthritis
     Dosage: 400 MILLIGRAM, EV 4 WEEKS
     Route: 058
     Dates: start: 2022
  3. OMEPRAZOLE [Concomitant]
     Active Substance: OMEPRAZOLE
     Indication: Product used for unknown indication
  4. KLONOPIN [Concomitant]
     Active Substance: CLONAZEPAM
     Indication: Product used for unknown indication
  5. CEFIXIME [Concomitant]
     Active Substance: CEFIXIME
     Indication: Product used for unknown indication
  6. VOLTAREN [Concomitant]
     Active Substance: DICLOFENAC SODIUM
     Indication: Product used for unknown indication
  7. MEDROL [Concomitant]
     Active Substance: METHYLPREDNISOLONE
     Indication: Product used for unknown indication
  8. LEFLUNOMIDE [Concomitant]
     Active Substance: LEFLUNOMIDE
     Indication: Ankylosing spondylitis
  9. ADDERALL [Concomitant]
     Active Substance: AMPHETAMINE ASPARTATE\AMPHETAMINE SULFATE\DEXTROAMPHETAMINE SACCHARATE\DEXTROAMPHETAMINE SULFATE
     Indication: Product used for unknown indication
  10. ALPRAZOLAM [Concomitant]
     Active Substance: ALPRAZOLAM
     Indication: Product used for unknown indication

REACTIONS (13)
  - Psoriatic arthropathy [Not Recovered/Not Resolved]
  - Ankylosing spondylitis [Not Recovered/Not Resolved]
  - Hypoaesthesia [Not Recovered/Not Resolved]
  - Muscular weakness [Not Recovered/Not Resolved]
  - Nerve compression [Not Recovered/Not Resolved]
  - Blood calcium decreased [Unknown]
  - Psychotic disorder [Not Recovered/Not Resolved]
  - Depression [Not Recovered/Not Resolved]
  - Vitamin D decreased [Unknown]
  - Product prescribing issue [Unknown]
  - Therapy interrupted [Unknown]
  - Product use in unapproved indication [Unknown]
  - Drug ineffective [Unknown]

NARRATIVE: CASE EVENT DATE: 20220101
